FAERS Safety Report 6581917-9 (Version None)
Quarter: 2010Q1

REPORT INFORMATION
  Report Type: 
  Country: None (occurrence: None)
  Receive Date: 20100212
  Receipt Date: 20100212
  Transmission Date: 20100710
  Serious: Yes (Hospitalization)
  Sender: FDA-Public Use
  Company Number: None

PATIENT
  Age: 95 Year
  Sex: Male
  Weight: 58 kg

DRUGS (2)
  1. DIGOXIN [Suspect]
     Indication: ATRIAL FIBRILLATION
     Dosage: 0.125 MG EVERY DAY PO
     Route: 048
     Dates: end: 20090802
  2. AMIODARONE HCL [Suspect]
     Dosage: 200 MG EVERY DAY PO
     Route: 048
     Dates: end: 20090802

REACTIONS (3)
  - ATRIOVENTRICULAR BLOCK COMPLETE [None]
  - BLOOD CREATININE INCREASED [None]
  - BRADYCARDIA [None]
